FAERS Safety Report 9383502 (Version 2)
Quarter: 2013Q3

REPORT INFORMATION
  Report Type: Spontaneous
  Country: NL (occurrence: NL)
  Receive Date: 20130704
  Receipt Date: 20130711
  Transmission Date: 20140515
  Serious: Yes (Death, Other)
  Sender: FDA-Public Use
  Company Number: NL-ASTRAZENECA-2013SE50001

PATIENT
  Age: 84 Year
  Sex: Male

DRUGS (3)
  1. CASODEX [Suspect]
     Indication: PROSTATE CANCER
     Route: 048
     Dates: start: 20080605, end: 200901
  2. CASODEX [Suspect]
     Indication: PROSTATE CANCER
     Route: 048
     Dates: start: 200809
  3. GOSERELIN [Suspect]
     Route: 065

REACTIONS (5)
  - General physical health deterioration [Fatal]
  - Liver injury [Recovering/Resolving]
  - Hyperkinesia [Recovering/Resolving]
  - Jaundice [Recovering/Resolving]
  - Fatigue [Recovering/Resolving]
